FAERS Safety Report 20430756 (Version 1)
Quarter: 2022Q1

REPORT INFORMATION
  Report Type: Report from Study
  Country: FR (occurrence: FR)
  Receive Date: 20220204
  Receipt Date: 20220204
  Transmission Date: 20220423
  Serious: Yes (Hospitalization)
  Sender: FDA-Public Use
  Company Number: FR-SERVIER-S21004064

PATIENT

DRUGS (10)
  1. PEGASPARGASE [Suspect]
     Active Substance: PEGASPARGASE
     Indication: Acute lymphocytic leukaemia
     Dosage: 2725 IU, OTHER ON D4 AND D43
     Route: 042
     Dates: start: 20210225, end: 20210408
  2. ADRIAMYCIN [Concomitant]
     Active Substance: DOXORUBICIN HYDROCHLORIDE
     Indication: Acute lymphocytic leukaemia
     Dosage: 27 MG ON D1, D8, AND D15
     Route: 042
     Dates: start: 20210222, end: 20210308
  3. TN UNSPECIFIED [Concomitant]
     Indication: Acute lymphocytic leukaemia
     Dosage: 1.6 MG ON D1, D8, D15, AND D43
     Route: 042
     Dates: start: 20210222, end: 20210408
  4. TN UNSPECIFIED [Concomitant]
     Indication: Acute lymphocytic leukaemia
     Dosage: 11 MG ON D1 TO D7, AND D15 TO D21
     Route: 048
     Dates: start: 20210222, end: 20210314
  5. TN UNSPECIFIED [Concomitant]
     Indication: Acute lymphocytic leukaemia
     Dosage: 1090 MG ON D29
     Route: 042
     Dates: start: 20210325
  6. TN UNSPECIFIED [Concomitant]
     Indication: Acute lymphocytic leukaemia
     Dosage: 82 MG ON D31 TO D34, AND D38 TO D41
     Route: 042
     Dates: start: 20210327, end: 20210406
  7. TN UNSPECIFIED [Concomitant]
     Dosage: 30 MG ON D4 AND D31
     Route: 037
     Dates: start: 20210225, end: 20210329
  8. TN UNSPECIFIED [Concomitant]
     Indication: Acute lymphocytic leukaemia
     Dosage: 65 MG ON D29 AND D42
     Route: 048
     Dates: start: 20210325, end: 20210407
  9. TN UNSPECIFIED [Concomitant]
     Indication: Acute lymphocytic leukaemia
     Dosage: 15 MG ON D4 AND D31
     Route: 037
     Dates: start: 20210225, end: 20210329
  10. TN UNSPECIFIED [Concomitant]
     Indication: Acute lymphocytic leukaemia
     Dosage: 15 MG ON D4 AND D31
     Route: 037
     Dates: start: 20210225, end: 20210329

REACTIONS (1)
  - Febrile bone marrow aplasia [Recovering/Resolving]

NARRATIVE: CASE EVENT DATE: 20210408
